FAERS Safety Report 12475517 (Version 1)
Quarter: 2016Q2

REPORT INFORMATION
  Report Type: Spontaneous
  Country: IT (occurrence: IT)
  Receive Date: 20160617
  Receipt Date: 20160617
  Transmission Date: 20160815
  Serious: Yes (Other)
  Sender: FDA-Public Use
  Company Number: IT-TEVA-668059ACC

PATIENT
  Age: 44 Year
  Sex: Male

DRUGS (11)
  1. CIPROFLOXACIN. [Suspect]
     Active Substance: CIPROFLOXACIN
     Indication: URINARY TRACT INFECTION
  2. POTASSIUM [Suspect]
     Active Substance: POTASSIUM
     Indication: HYPOKALAEMIA
     Route: 048
  3. THIAMINE HYDROCHLORIDE. [Suspect]
     Active Substance: THIAMINE HYDROCHLORIDE
     Indication: VITAMIN SUPPLEMENTATION
     Dosage: 100 MILLIGRAM DAILY; 100 MG DAILY
  4. CARBAMAZEPINE. [Suspect]
     Active Substance: CARBAMAZEPINE
     Indication: SEIZURE
  5. DELORAZEPAM [Suspect]
     Active Substance: DELORAZEPAM
     Indication: ALCOHOL WITHDRAWAL SYNDROME
     Dosage: 9 MILLIGRAM DAILY; 9 MG PER DAY
  6. CHOLECALCIFEROL [Suspect]
     Active Substance: CHOLECALCIFEROL
     Indication: VITAMIN D DEFICIENCY
     Dosage: 100000 IU
  7. LEVETIRACETAM. [Suspect]
     Active Substance: LEVETIRACETAM
     Indication: SEIZURE
  8. RISPERIDONE. [Suspect]
     Active Substance: RISPERIDONE
     Indication: SENSORY DISTURBANCE
     Dosage: 1 MILLIGRAM DAILY; 1 MG DAILY
  9. DELORAZEPAM [Suspect]
     Active Substance: DELORAZEPAM
     Dosage: 6 MILLIGRAM DAILY; TAPERED TO 6 MG PER DAY
  10. HALOPERIDOL. [Suspect]
     Active Substance: HALOPERIDOL
     Indication: SENSORY DISTURBANCE
     Dosage: 1.5 MILLIGRAM DAILY; 1.5 MG DAILY
  11. PROMETHAZINE [Suspect]
     Active Substance: PROMETHAZINE\PROMETHAZINE HYDROCHLORIDE
     Indication: PSYCHOMOTOR HYPERACTIVITY

REACTIONS (2)
  - Behavioural and psychiatric symptoms of dementia [Unknown]
  - Condition aggravated [Unknown]
